FAERS Safety Report 24891393 (Version 1)
Quarter: 2025Q1

REPORT INFORMATION
  Report Type: Spontaneous
  Country: TW (occurrence: TW)
  Receive Date: 20250127
  Receipt Date: 20250127
  Transmission Date: 20250408
  Serious: Yes (Other)
  Sender: MYLAN
  Company Number: TW-MYLANLABS-2025M1006829

PATIENT
  Age: 29 Year
  Sex: Male

DRUGS (7)
  1. VENLAFAXINE [Suspect]
     Active Substance: VENLAFAXINE HYDROCHLORIDE
     Indication: Agitation
     Dosage: 225 MILLIGRAM, QD (DAILY)
     Route: 065
  2. CLOZAPINE [Suspect]
     Active Substance: CLOZAPINE
     Indication: Product used for unknown indication
     Dosage: 25 MILLIGRAM, QD (DAILY)
     Route: 065
  3. CLOZAPINE [Suspect]
     Active Substance: CLOZAPINE
     Dosage: 12.5 MILLIGRAM, QD (DAILY)
     Route: 065
  4. QUETIAPINE [Concomitant]
     Active Substance: QUETIAPINE
     Route: 065
  5. VALPROIC ACID [Concomitant]
     Active Substance: VALPROIC ACID
     Route: 065
  6. LITHIUM [Concomitant]
     Active Substance: LITHIUM
     Route: 065
  7. ATOMOXETINE [Concomitant]
     Active Substance: ATOMOXETINE
     Indication: Aggression
     Route: 065

REACTIONS (4)
  - Pneumonia aspiration [Unknown]
  - Drooling [Unknown]
  - Euphoric mood [Recovered/Resolved]
  - Aggression [Recovered/Resolved]
